FAERS Safety Report 6445967-5 (Version None)
Quarter: 2009Q4

REPORT INFORMATION
  Report Type: 
  Country: None (occurrence: None)
  Receive Date: 20091119
  Receipt Date: 20090415
  Transmission Date: 20100525
  Serious: No
  Sender: FDA-Public Use
  Company Number: A0778941A

PATIENT
  Age: 51 Year
  Sex: Female

DRUGS (6)
  1. BUPROPION HCL [Suspect]
     Indication: DEPRESSION
     Dosage: 450MG PER DAY
     Route: 048
     Dates: start: 20080101
  2. ESTRADIOL [Concomitant]
  3. LEVOXYL [Concomitant]
  4. HYDROCHLOROTHIAZIDE [Concomitant]
  5. ZOCOR [Concomitant]
  6. LEXAPRO [Concomitant]

REACTIONS (4)
  - ASTHENIA [None]
  - CRYING [None]
  - DRUG INEFFECTIVE [None]
  - PERSONALITY CHANGE [None]
